FAERS Safety Report 17175694 (Version 1)
Quarter: 2019Q4

REPORT INFORMATION
  Report Type: Report from Study
  Country: BR (occurrence: BR)
  Receive Date: 20191219
  Receipt Date: 20191219
  Transmission Date: 20200122
  Serious: Yes (Hospitalization)
  Sender: FDA-Public Use
  Company Number: BR-UCBSA-2019053406

PATIENT
  Age: 52 Year
  Sex: Male

DRUGS (5)
  1. TOPIRAMATO [Concomitant]
     Active Substance: TOPIRAMATE
     Indication: SEIZURE
  2. FENITOINA [PHENYTOIN] [Concomitant]
     Active Substance: PHENYTOIN
     Indication: SEIZURE
  3. LACOTEM [Concomitant]
     Active Substance: LACOSAMIDE
     Indication: SEIZURE
  4. CLOBAZAM. [Concomitant]
     Active Substance: CLOBAZAM
     Indication: SEIZURE
  5. LACOSAMIDE. [Suspect]
     Active Substance: LACOSAMIDE
     Indication: SEIZURE
     Dosage: 100 MG
     Route: 048

REACTIONS (4)
  - Product availability issue [Unknown]
  - Headache [Unknown]
  - Post procedural complication [Unknown]
  - Brain neoplasm [Unknown]

NARRATIVE: CASE EVENT DATE: 20191107
